FAERS Safety Report 9786293 (Version 1)
Quarter: 2013Q4

REPORT INFORMATION
  Report Type: Spontaneous
  Country: GB (occurrence: None)
  Receive Date: 20131224
  Receipt Date: 20131224
  Transmission Date: 20140711
  Serious: Yes (Hospitalization)
  Sender: FDA-Public Use
  Company Number: 2013P1022196

PATIENT
  Age: 70 Year
  Sex: Female

DRUGS (9)
  1. HYDROXYCHLOROQUINE [Suspect]
     Indication: RHEUMATOID ARTHRITIS
     Route: 048
     Dates: start: 20131001, end: 20131126
  2. AMLODIPINE [Suspect]
     Indication: HYPERTENSION
     Route: 048
     Dates: start: 20131015, end: 20131126
  3. DOXAZOSIN [Suspect]
     Indication: HYPERTENSION
     Route: 048
     Dates: start: 20131119, end: 20131126
  4. OMEPRAZOLE [Concomitant]
  5. FUROSEMIDE [Concomitant]
  6. LOSARTAN [Concomitant]
  7. NAPROXEN [Concomitant]
  8. PREDNISOLONE [Concomitant]
  9. ERYTHROMYCIN [Concomitant]

REACTIONS (2)
  - Dyspnoea [None]
  - Liver function test abnormal [None]
